FAERS Safety Report 25541229 (Version 3)
Quarter: 2025Q3

REPORT INFORMATION
  Report Type: Spontaneous
  Country: EU (occurrence: EU)
  Receive Date: 20250710
  Receipt Date: 20250911
  Transmission Date: 20251021
  Serious: Yes (Hospitalization)
  Sender: SANDOZ
  Company Number: EU-ASTRAZENECA-202506GLO015840DE

PATIENT
  Age: 29 Year
  Sex: Female
  Weight: 101 kg

DRUGS (11)
  1. CARBOPLATIN [Suspect]
     Active Substance: CARBOPLATIN
     Indication: Triple negative breast cancer
     Route: 042
     Dates: start: 20241114, end: 20250206
  2. CYCLOPHOSPHAMIDE [Suspect]
     Active Substance: CYCLOPHOSPHAMIDE
     Indication: Triple negative breast cancer
     Dosage: 600 MG, Q3W
     Route: 042
     Dates: start: 20250213, end: 20250417
  3. EPIRUBICIN [Suspect]
     Active Substance: EPIRUBICIN
     Indication: Triple negative breast cancer
     Dosage: 90 MG/M2, ONCE EVERY 3 WK  (DS-1062A STUDY)
     Route: 042
     Dates: start: 20250213, end: 20250417
  4. PACLITAXEL [Suspect]
     Active Substance: PACLITAXEL
     Indication: Triple negative breast cancer
     Dosage: 80 MG/M2, ONCE EVERY 1 WK,80 MG/M^2
     Route: 042
     Dates: start: 20241114, end: 20250206
  5. PEMBROLIZUMAB [Suspect]
     Active Substance: PEMBROLIZUMAB
     Indication: Triple negative breast cancer
     Dosage: 200 MG, Q3W
     Route: 042
     Dates: start: 20241114
  6. Akynzeo [Concomitant]
     Indication: Prophylaxis
     Route: 048
     Dates: start: 20250213
  7. DEXAMETHASONE [Concomitant]
     Active Substance: DEXAMETHASONE
     Indication: Chemotherapy side effect prophylaxis
     Route: 048
  8. GRANISETRON [Concomitant]
     Active Substance: GRANISETRON
     Indication: Prophylaxis of nausea and vomiting
     Route: 048
  9. PANTOPRAZOLE [Concomitant]
     Active Substance: PANTOPRAZOLE
     Indication: Prophylaxis
     Route: 048
  10. VITAMIN D3 [Concomitant]
     Active Substance: CHOLECALCIFEROL
     Indication: Product used for unknown indication
     Route: 065
  11. GOSERELIN [Concomitant]
     Active Substance: GOSERELIN
     Indication: Hormone suppression therapy
     Dosage: 3.6 MG, Q4W
     Route: 058

REACTIONS (1)
  - General physical health deterioration [Recovered/Resolved]

NARRATIVE: CASE EVENT DATE: 20250618
